FAERS Safety Report 10588610 (Version 2)
Quarter: 2014Q4

REPORT INFORMATION
  Report Type: Spontaneous
  Country: US (occurrence: US)
  Receive Date: 20141117
  Receipt Date: 20141117
  Transmission Date: 20150529
  Serious: Yes (Other)
  Sender: FDA-Public Use
  Company Number: US-ABBVIE-09P-163-0608327-00

PATIENT

DRUGS (1)
  1. ADALIMUMAB [Suspect]
     Active Substance: ADALIMUMAB
     Indication: CROHN^S DISEASE
     Route: 065

REACTIONS (10)
  - Lupus-like syndrome [Unknown]
  - Mouth ulceration [Unknown]
  - Asthenia [Unknown]
  - Red blood cell sedimentation rate increased [Unknown]
  - Arthritis [Unknown]
  - Antinuclear antibody [Unknown]
  - Double stranded DNA antibody positive [Unknown]
  - Fatigue [Unknown]
  - Rash erythematous [Unknown]
  - Pyrexia [Unknown]
